FAERS Safety Report 8263150-8 (Version None)
Quarter: 2012Q2

REPORT INFORMATION
  Report Type: 
  Country: None (occurrence: None)
  Receive Date: 20120405
  Receipt Date: 20120330
  Transmission Date: 20120825
  Serious: Yes (Other)
  Sender: FDA-Public Use
  Company Number: US-ALEXION-A201200619

PATIENT

DRUGS (2)
  1. SOLIRIS [Suspect]
     Dosage: 1200 MG, Q2W
     Dates: start: 20111001
  2. EPOGEN [Suspect]

REACTIONS (3)
  - DRUG RESISTANCE [None]
  - BONE MARROW DISORDER [None]
  - HAEMOGLOBIN DECREASED [None]
